FAERS Safety Report 8562421-5 (Version None)
Quarter: 2012Q3

REPORT INFORMATION
  Report Type: 
  Country: None (occurrence: None)
  Receive Date: 20120802
  Receipt Date: 20120727
  Transmission Date: 20120928
  Serious: Yes (Death)
  Sender: FDA-Public Use
  Company Number: US-BAYER-2012-076524

PATIENT
  Sex: Male

DRUGS (1)
  1. ALKA-SELTZER ORIGINAL [Suspect]
     Route: 048

REACTIONS (1)
  - DEATH [None]
